FAERS Safety Report 8315895 (Version 2)
Quarter: 2020Q3

REPORT INFORMATION
  Report Type: Spontaneous
  Country: BR (occurrence: BR)
  Receive Date: 20111229
  Receipt Date: 20200709
  Transmission Date: 20201103
  Serious: Yes (Hospitalization, Disabling, Other)
  Sender: FDA-Public Use
  Company Number: BR-BIOMARINP-000262

PATIENT
  Age: 7 Year
  Sex: Male
  Weight: 14.6 kg

DRUGS (7)
  1. NAGLAZYME [Suspect]
     Active Substance: GALSULFASE
     Dosage: 1.5ML,1 DOSE 1 TIMES PER MONTH
     Route: 037
     Dates: start: 20070316, end: 20070622
  2. BACLOFEN. [Concomitant]
     Active Substance: BACLOFEN
     Indication: MUSCLE SPASMS
     Dosage: UNK, QD
  3. NAGLAZYME [Suspect]
     Active Substance: GALSULFASE
     Indication: MUCOPOLYSACCHARIDOSIS VI
     Dosage: 1MG/KG,QW
     Route: 041
     Dates: start: 200801, end: 20080320
  4. NAGLAZYME [Suspect]
     Active Substance: GALSULFASE
     Dosage: 15MG,QW
     Route: 041
     Dates: start: 20071008, end: 200712
  5. NAGLAZYME [Suspect]
     Active Substance: GALSULFASE
     Dosage: 1.5 ML, UNK
     Route: 037
     Dates: start: 20071122, end: 20071122
  6. NAGLAZYME [Suspect]
     Active Substance: GALSULFASE
     Dosage: UNK
     Route: 037
     Dates: start: 200812
  7. CAPTOPRIL. [Concomitant]
     Active Substance: CAPTOPRIL
     Indication: BLOOD PRESSURE MEASUREMENT
     Dosage: 12.5 MILLIGRAM, TID

REACTIONS (17)
  - Dyspnoea [Recovered/Resolved]
  - Postoperative wound infection [Recovered/Resolved]
  - Incorrect dose administered [Unknown]
  - Gait disturbance [Unknown]
  - Atlantoaxial instability [Recovering/Resolving]
  - Pyramidal tract syndrome [Unknown]
  - Bladder disorder [Unknown]
  - Hypokinesia [Recovering/Resolving]
  - Sleep apnoea syndrome [Recovered/Resolved]
  - Bronchospasm [Unknown]
  - Muscle spasticity [Recovering/Resolving]
  - Hypotonia [Unknown]
  - Muscular weakness [Unknown]
  - Oxygen saturation decreased [Unknown]
  - Asthenia [Recovering/Resolving]
  - Spinal cord compression [Recovered/Resolved]
  - Paraplegia [Recovered/Resolved]

NARRATIVE: CASE EVENT DATE: 2007
